FAERS Safety Report 14033101 (Version 2)
Quarter: 2017Q4

REPORT INFORMATION
  Report Type: Spontaneous
  Country: US (occurrence: US)
  Receive Date: 20171003
  Receipt Date: 20171212
  Transmission Date: 20180321
  Serious: No
  Sender: FDA-Public Use
  Company Number: US-PFIZER INC-2017419080

PATIENT
  Age: 72 Year
  Sex: Male
  Weight: 90.7 kg

DRUGS (35)
  1. RIBOFLAVIN [Concomitant]
     Active Substance: RIBOFLAVIN
     Indication: SUPPLEMENTATION THERAPY
     Dosage: 20 MG, ONCE DAILY
  2. NIACIN. [Concomitant]
     Active Substance: NIACIN
     Indication: SUPPLEMENTATION THERAPY
     Dosage: 20 MG, ONCE DAILY
  3. REQUIP [Concomitant]
     Active Substance: ROPINIROLE HYDROCHLORIDE
     Indication: NEUROPATHY PERIPHERAL
     Dosage: 5 MG, ONCE A DAY
  4. CALCIUM PANTOTHENATE [Concomitant]
     Active Substance: CALCIUM PANTOTHENATE
     Indication: SUPPLEMENTATION THERAPY
     Dosage: UNK, ONCE DAILY
  5. LOSARTAN. [Concomitant]
     Active Substance: LOSARTAN
     Indication: BLOOD PRESSURE ABNORMAL
     Dosage: 100 MG, ONCE DAILY
  6. CALCIUM + D3 [Concomitant]
     Active Substance: CALCIUM\CHOLECALCIFEROL
     Indication: SUPPLEMENTATION THERAPY
     Dosage: UNK, ONCE DAILY
  7. LYRICA [Suspect]
     Active Substance: PREGABALIN
     Indication: NEUROPATHY PERIPHERAL
     Dosage: 150 MG, TWICE DAILY
  8. GABAPENTIN. [Concomitant]
     Active Substance: GABAPENTIN
     Indication: NEUROPATHY PERIPHERAL
     Dosage: UNK
     Dates: start: 20170724
  9. B6 [Concomitant]
     Active Substance: PYRIDOXINE HYDROCHLORIDE
     Indication: SUPPLEMENTATION THERAPY
     Dosage: 100 MG, ONCE DAILY
  10. B COMPLEX PLUS C [Concomitant]
     Indication: SUPPLEMENTATION THERAPY
     Dosage: UNK
  11. THIAMIN [Concomitant]
     Active Substance: THIAMINE
     Indication: SUPPLEMENTATION THERAPY
     Dosage: 100 MG, ONCE DAILY
  12. VITAMIN B12 [Concomitant]
     Active Substance: CYANOCOBALAMIN
     Indication: SUPPLEMENTATION THERAPY
     Dosage: 12 UG, ONCE DAILY (MORNING)
  13. VITAMIN B12 [Concomitant]
     Active Substance: CYANOCOBALAMIN
     Dosage: 400 UG, ONCE DAILY (MORNING)
  14. BIOTIN [Concomitant]
     Active Substance: BIOTIN
     Indication: SUPPLEMENTATION THERAPY
     Dosage: 30 UG, ONCE DAILY
  15. CANNABIDIOL [Concomitant]
     Active Substance: CANNABIDIOL
     Indication: NEUROPATHY PERIPHERAL
     Dosage: 150 MG, TWICE DAILY
  16. COQ 10 [Concomitant]
     Active Substance: UBIDECARENONE
     Indication: SUPPLEMENTATION THERAPY
     Dosage: 300 MG, ONCE DAILY
  17. ASPIRIN. [Concomitant]
     Active Substance: ASPIRIN
     Indication: BLOOD PRESSURE ABNORMAL
     Dosage: 160 MG, ONCE A DAY
  18. MELATONIN [Concomitant]
     Active Substance: MELATONIN
     Indication: SLEEP DISORDER
     Dosage: 750 UG, ONCE A DAY
  19. FOLIC ACID. [Concomitant]
     Active Substance: FOLIC ACID
     Indication: SUPPLEMENTATION THERAPY
     Dosage: 400 UG, ONCE DAILY
  20. CALCIUM + D3 [Concomitant]
     Active Substance: CALCIUM\CHOLECALCIFEROL
     Indication: NEUROPATHY PERIPHERAL
     Dosage: UNK UNK, TWICE DAILY (CALCIUM 600 MG -D3 -800 IU);(NIGHT TIME PM)
  21. SUPER B COMPLEX [Concomitant]
     Active Substance: CYANOCOBALAMIN\DEXPANTHENOL\NIACINAMIDE\PYRIDOXINE HYDROCHLORIDE\RIBOFLAVIN 5^-PHOSPHATE SODIUM\THIAMINE HYDROCHLORIDE\VITAMIN B COMPLEX
     Indication: SUPPLEMENTATION THERAPY
     Dosage: UNK
  22. IRON [Concomitant]
     Active Substance: IRON
     Indication: SUPPLEMENTATION THERAPY
     Dosage: 65 MG, ONCE DAILY
  23. ALPHA LIPOIC ACID [Concomitant]
     Active Substance: .ALPHA.-LIPOIC ACID
     Indication: SUPPLEMENTATION THERAPY
     Dosage: UNK
  24. MAGNESIUM [Concomitant]
     Active Substance: MAGNESIUM
     Indication: SUPPLEMENTATION THERAPY
     Dosage: 400 MG, ONCE DAILY
  25. HYDRALAZINE [Concomitant]
     Active Substance: HYDRALAZINE HYDROCHLORIDE
     Indication: BLOOD PRESSURE ABNORMAL
     Dosage: 100 MG, THREE TIMES DAILY
  26. B6 [Concomitant]
     Active Substance: PYRIDOXINE HYDROCHLORIDE
     Dosage: 2 MG, ONCE DAILY (MORNING)
  27. VITAMIN B12 [Concomitant]
     Active Substance: CYANOCOBALAMIN
     Dosage: 2500 UG, ONCE DAILY
  28. BIOTIN [Concomitant]
     Active Substance: BIOTIN
     Dosage: 400 UG, ONCE DAILY
  29. PANTOTHENIC ACID CALCIUM [Concomitant]
     Indication: SUPPLEMENTATION THERAPY
     Dosage: UNK, ONCE DAILY
  30. LYRICA [Suspect]
     Active Substance: PREGABALIN
     Indication: PAIN
  31. NIACIN. [Concomitant]
     Active Substance: NIACIN
     Dosage: 108 MG, ONCE DAILY
  32. LYRICA [Suspect]
     Active Substance: PREGABALIN
     Indication: NEURALGIA
     Dosage: 300 MG, TWICE DAILY
     Route: 048
     Dates: start: 20171017
  33. GABAPENTIN. [Concomitant]
     Active Substance: GABAPENTIN
     Dosage: 300 MG, ONCE DAILY (MORNING AM)
  34. C [Concomitant]
     Indication: SUPPLEMENTATION THERAPY
     Dosage: 150 MG, ONCE DAILY
  35. CANNABIDIOL [Concomitant]
     Active Substance: CANNABIDIOL
     Indication: SUPPLEMENTATION THERAPY
     Dosage: 300 MG, ONCE DAILY

REACTIONS (6)
  - Intentional product use issue [Unknown]
  - Drug ineffective [Recovering/Resolving]
  - Feeling abnormal [Recovering/Resolving]
  - Burning sensation [Unknown]
  - Paraesthesia [Recovering/Resolving]
  - Insomnia [Not Recovered/Not Resolved]

NARRATIVE: CASE EVENT DATE: 20170725
